FAERS Safety Report 16620297 (Version 1)
Quarter: 2019Q3

REPORT INFORMATION
  Report Type: Spontaneous
  Country: US (occurrence: US)
  Receive Date: 20190723
  Receipt Date: 20190723
  Transmission Date: 20191004
  Serious: No
  Sender: FDA-Public Use
  Company Number: US-CHIESI USA, INC.-US-2018CHI000245

PATIENT

DRUGS (1)
  1. ZYFLO CR [Suspect]
     Active Substance: ZILEUTON
     Indication: ASTHMA
     Dosage: 1200 MG, BID
     Route: 048
     Dates: start: 20180619, end: 2018

REACTIONS (4)
  - Headache [Unknown]
  - Feeling jittery [Unknown]
  - Bruxism [Unknown]
  - Anxiety [Unknown]

NARRATIVE: CASE EVENT DATE: 2018
